FAERS Safety Report 8237412-4 (Version None)
Quarter: 2012Q1

REPORT INFORMATION
  Report Type: 
  Country: None (occurrence: None)
  Receive Date: 20120323
  Receipt Date: 20120301
  Transmission Date: 20120608
  Serious: Yes (Other)
  Sender: FDA-Public Use
  Company Number: 2012000050

PATIENT
  Age: 61 Year
  Sex: Female

DRUGS (7)
  1. GLUCOPHAGE [Concomitant]
  2. ACEON [Suspect]
     Indication: CARDIAC FAILURE
     Dosage: 5 MG, QD, ORAL
     Route: 048
     Dates: start: 20070601
  3. ALDACTONE [Suspect]
     Indication: CARDIAC FAILURE
     Dosage: 75 MG, QD, ORAL
     Route: 048
     Dates: start: 20070101
  4. LEVONORGESTREL AND ETHINYL ESTRADIOL [Concomitant]
  5. LEVOTHYROXINE SODIUM [Concomitant]
  6. OMEGA-3 (OMEGA-3 TRIGLYCERIDES) [Concomitant]
  7. TOPLEXIL (GUAIFENESIN, OXOMEMAZINE) [Concomitant]

REACTIONS (4)
  - SYNCOPE [None]
  - DIZZINESS [None]
  - COUGH [None]
  - FATIGUE [None]
